FAERS Safety Report 20630041 (Version 1)
Quarter: 2022Q1

REPORT INFORMATION
  Report Type: Report from Study
  Country: US (occurrence: US)
  Receive Date: 20220324
  Receipt Date: 20220324
  Transmission Date: 20220423
  Serious: Yes (Other)
  Sender: FDA-Public Use
  Company Number: US-TEVA-2022-US-2018284

PATIENT
  Sex: Female

DRUGS (2)
  1. AUSTEDO [Suspect]
     Active Substance: DEUTETRABENAZINE
     Indication: Huntington^s disease
     Dosage: (3) 6MG TABLETS ONCE A DAY
     Route: 065
  2. AUSTEDO [Suspect]
     Active Substance: DEUTETRABENAZINE
     Dosage: (4) 6MG TABLETS
     Route: 065
     Dates: start: 20220210

REACTIONS (3)
  - Cardiac flutter [Unknown]
  - Extrasystoles [Unknown]
  - Dyspnoea [Unknown]
